FAERS Safety Report 7026370-6 (Version None)
Quarter: 2010Q3

REPORT INFORMATION
  Report Type: 
  Country: None (occurrence: None)
  Receive Date: 20100929
  Receipt Date: 20100922
  Transmission Date: 20110219
  Serious: Yes (Hospitalization)
  Sender: FDA-Public Use
  Company Number: 014183

PATIENT
  Sex: Female
  Weight: 47.1 kg

DRUGS (8)
  1. LEVETIRACETAM [Suspect]
     Indication: PARTIAL SEIZURES
     Dosage: 500 MG BID  ORAL, 1000 MG BID ORAL, 1500 MG BID ORAL
     Route: 048
     Dates: start: 20060907, end: 20061004
  2. LEVETIRACETAM [Suspect]
     Indication: PARTIAL SEIZURES
     Dosage: 500 MG BID  ORAL, 1000 MG BID ORAL, 1500 MG BID ORAL
     Route: 048
     Dates: start: 20061005, end: 20061129
  3. LEVETIRACETAM [Suspect]
     Indication: PARTIAL SEIZURES
     Dosage: 500 MG BID  ORAL, 1000 MG BID ORAL, 1500 MG BID ORAL
     Route: 048
     Dates: start: 20061130, end: 20100118
  4. LEVETIRACETAM [Suspect]
     Indication: PARTIAL SEIZURES
     Dosage: 500 MG BID  ORAL, 1000 MG BID ORAL, 1500 MG BID ORAL
     Route: 048
     Dates: start: 20100119, end: 20100215
  5. LEVETIRACETAM [Suspect]
     Indication: PARTIAL SEIZURES
     Dosage: 500 MG BID  ORAL, 1000 MG BID ORAL, 1500 MG BID ORAL
     Route: 048
     Dates: start: 20060127
  6. LEVETIRACETAM [Suspect]
     Indication: PARTIAL SEIZURES
     Dosage: 500 MG BID  ORAL, 1000 MG BID ORAL, 1500 MG BID ORAL
     Route: 048
     Dates: start: 20100216
  7. CARBAMAZEPINE [Concomitant]
  8. TELESMIN [Concomitant]

REACTIONS (7)
  - ANXIETY [None]
  - DELUSION OF REFERENCE [None]
  - DRUG EFFECT DECREASED [None]
  - HEADACHE [None]
  - HYPERACUSIS [None]
  - HYPOAESTHESIA [None]
  - IDEAS OF REFERENCE [None]
